FAERS Safety Report 15734804 (Version 5)
Quarter: 2019Q1

REPORT INFORMATION
  Report Type: Report from Study
  Country: HK (occurrence: HK)
  Receive Date: 20181218
  Receipt Date: 20190307
  Transmission Date: 20190417
  Serious: Yes (Hospitalization)
  Sender: FDA-Public Use
  Company Number: HK-ROCHE-2230375

PATIENT
  Age: 80 Year
  Sex: Female

DRUGS (4)
  1. AMLODIPINE [Concomitant]
     Active Substance: AMLODIPINE BESYLATE
     Indication: HYPERTENSION
     Route: 065
     Dates: start: 20181121
  2. ATEZOLIZUMAB. [Suspect]
     Active Substance: ATEZOLIZUMAB
     Indication: HEPATOCELLULAR CARCINOMA
     Dosage: ON 29/NOV/2018, SHE RECEIVED HER MOST RECENT DOSE (1200 MG) OF ATEZOLIZUMAB PRIOR TO THE AE AND SAE.
     Route: 042
     Dates: start: 20181129
  3. BEVACIZUMAB. [Suspect]
     Active Substance: BEVACIZUMAB
     Indication: HEPATOCELLULAR CARCINOMA
     Dosage: ON 29/NOV/2018, SHE RECEIVED HER MOST RECENT DOSE (861 MG) OF BEVACIZUMAB PRIOR TO THE AE AND SAE.
     Route: 042
     Dates: start: 20181129
  4. ENTECAVIR. [Concomitant]
     Active Substance: ENTECAVIR
     Indication: VIRAL HEPATITIS CARRIER
     Route: 065
     Dates: start: 20120524

REACTIONS (1)
  - Muscular weakness [Recovered/Resolved]

NARRATIVE: CASE EVENT DATE: 20181209
